FAERS Safety Report 22010139 (Version 3)
Quarter: 2023Q1

REPORT INFORMATION
  Report Type: Spontaneous
  Country: US (occurrence: None)
  Receive Date: 20230220
  Receipt Date: 20230327
  Transmission Date: 20230418
  Serious: Yes (Hospitalization)
  Sender: FDA-Public Use
  Company Number: US-FARMAPROD-202302-0346

PATIENT
  Sex: Male

DRUGS (3)
  1. OXERVATE [Suspect]
     Active Substance: CENEGERMIN-BKBJ
     Indication: Neurotrophic keratopathy
     Route: 047
     Dates: start: 20230207
  2. ZIRGAN [Concomitant]
     Active Substance: GANCICLOVIR
     Dosage: EVERY 4 HOURS
     Route: 047
     Dates: start: 20230120
  3. VALTREX [Concomitant]
     Active Substance: VALACYCLOVIR HYDROCHLORIDE
     Route: 048
     Dates: start: 20230120

REACTIONS (2)
  - Hepatic cirrhosis [Unknown]
  - Hepatic cancer [Unknown]
